FAERS Safety Report 8520158-2 (Version None)
Quarter: 2012Q3

REPORT INFORMATION
  Report Type: 
  Country: None (occurrence: None)
  Receive Date: 20120705
  Receipt Date: 20120622
  Transmission Date: 20120928
  Serious: Yes (Hospitalization)
  Sender: FDA-Public Use
  Company Number: 2012SP015864

PATIENT
  Age: 67 Year
  Sex: Female
  Weight: 108 kg

DRUGS (3)
  1. COPEGUS [Suspect]
     Indication: HEPATITIS C
     Dosage: 1200 MG, QD, PO
     Route: 048
     Dates: start: 20110909, end: 20120323
  2. PEGASYS [Suspect]
     Indication: HEPATITIS C
     Dosage: 180 MCG, QW, SC
     Route: 058
     Dates: start: 20110909, end: 20120323
  3. VICTRELIS [Suspect]
     Indication: HEPATITIS C
     Dosage: 2400 MG, QD, PO
     Route: 048
     Dates: start: 20110909, end: 20120323

REACTIONS (1)
  - RETINAL DETACHMENT [None]
